FAERS Safety Report 8264760 (Version 4)
Quarter: 2013Q2

REPORT INFORMATION
  Report Type: Report from Study
  Country: JP (occurrence: JP)
  Receive Date: 20111128
  Receipt Date: 20130605
  Transmission Date: 20140414
  Serious: Yes (Life-Threatening)
  Sender: FDA-Public Use
  Company Number: JP-GLAXOSMITHKLINE-B0764687A

PATIENT
  Age: 75 Year
  Sex: Female
  Weight: 52 kg

DRUGS (5)
  1. REVOLADE [Suspect]
     Indication: IDIOPATHIC THROMBOCYTOPENIC PURPURA
     Dosage: 12.5MG PER DAY
     Route: 048
     Dates: start: 20110912, end: 20111114
  2. REVOLADE [Suspect]
     Indication: IDIOPATHIC THROMBOCYTOPENIC PURPURA
     Route: 048
     Dates: end: 20111031
  3. PREDONINE [Suspect]
     Indication: IDIOPATHIC THROMBOCYTOPENIC PURPURA
     Route: 048
  4. BENET [Concomitant]
     Indication: PROPHYLAXIS
     Route: 048
  5. GASTER [Concomitant]
     Indication: PROPHYLAXIS
     Route: 048

REACTIONS (4)
  - Hepatic function abnormal [Recovered/Resolved]
  - Deep vein thrombosis [Recovered/Resolved]
  - Platelet count decreased [Recovered/Resolved]
  - Platelet count decreased [Recovered/Resolved]
